FAERS Safety Report 9891149 (Version 1)
Quarter: 2014Q1

REPORT INFORMATION
  Report Type: Spontaneous
  Country: US (occurrence: None)
  Receive Date: 20140211
  Receipt Date: 20140211
  Transmission Date: 20141002
  Serious: Yes (Other)
  Sender: FDA-Public Use
  Company Number: None

PATIENT
  Age: 76 None
  Sex: Female

DRUGS (8)
  1. REVLIMID [Suspect]
     Indication: PLASMA CELL MYELOMA
     Dosage: DAILY X21/28D
     Route: 048
     Dates: start: 20131224, end: 20131225
  2. LEVOTHYROXINE [Concomitant]
  3. MORPHINE [Concomitant]
  4. HYDROMORPHONE [Concomitant]
  5. BISACODYL [Concomitant]
  6. DOCUSATE SODIUM [Concomitant]
  7. SENNA [Concomitant]
  8. VITAMIN C [Concomitant]

REACTIONS (2)
  - Muscle twitching [None]
  - Pyrexia [None]
